FAERS Safety Report 18001666 (Version 3)
Quarter: 2020Q4

REPORT INFORMATION
  Report Type: Report from Study
  Country: None (occurrence: US)
  Receive Date: 20200709
  Receipt Date: 20201030
  Transmission Date: 20210113
  Serious: Yes (Other)
  Sender: FDA-Public Use
  Company Number: US-ABBVIE-19K-163-3155721-00

PATIENT
  Age: 55 Year
  Sex: Female

DRUGS (5)
  1. IMBRUVICA [Suspect]
     Active Substance: IBRUTINIB
     Indication: CHRONIC LYMPHOCYTIC LEUKAEMIA
  2. ATORVASTATIN [Concomitant]
     Active Substance: ATORVASTATIN
     Indication: PRODUCT USED FOR UNKNOWN INDICATION
  3. CELEBREX [Concomitant]
     Active Substance: CELECOXIB
     Indication: PRODUCT USED FOR UNKNOWN INDICATION
  4. IMBRUVICA [Suspect]
     Active Substance: IBRUTINIB
     Indication: CHRONIC LYMPHOCYTIC LEUKAEMIA
     Route: 048
  5. IMBRUVICA [Suspect]
     Active Substance: IBRUTINIB
     Indication: LYMPHOCYTIC LEUKAEMIA
     Route: 048
     Dates: start: 201805

REACTIONS (13)
  - Anosmia [Not Recovered/Not Resolved]
  - Skin atrophy [Unknown]
  - Abdominal discomfort [Not Recovered/Not Resolved]
  - Arthralgia [Not Recovered/Not Resolved]
  - Ageusia [Not Recovered/Not Resolved]
  - Visual impairment [Not Recovered/Not Resolved]
  - Blindness [Unknown]
  - Diarrhoea [Not Recovered/Not Resolved]
  - Contusion [Unknown]
  - Scratch [Unknown]
  - Bone pain [Not Recovered/Not Resolved]
  - Increased tendency to bruise [Unknown]
  - Skin haemorrhage [Unknown]

NARRATIVE: CASE EVENT DATE: 20180504
